FAERS Safety Report 22158121 (Version 1)
Quarter: 2023Q1

REPORT INFORMATION
  Report Type: Report from Study
  Country: CH (occurrence: CH)
  Receive Date: 20230330
  Receipt Date: 20230330
  Transmission Date: 20230417
  Serious: Yes (Hospitalization)
  Sender: FDA-Public Use
  Company Number: CH-ABBVIE-4703335

PATIENT
  Age: 75 Year
  Sex: Male

DRUGS (13)
  1. IBRUTINIB [Suspect]
     Active Substance: IBRUTINIB
     Indication: Chronic lymphocytic leukaemia
     Route: 048
     Dates: start: 20220914, end: 20230321
  2. ASPIRIN [Concomitant]
     Active Substance: ASPIRIN
     Indication: Product used for unknown indication
     Dosage: FREQUENCY, ROA NOT REPORTED
     Dates: start: 20220914
  3. BISOPROLOL [Concomitant]
     Active Substance: BISOPROLOL
     Indication: Product used for unknown indication
     Dosage: FREQUENCY, ROA NOT REPORTED
     Route: 065
     Dates: start: 20220622
  4. Magnesium Granulat [Concomitant]
     Indication: Product used for unknown indication
     Dosage: FREQUENCY, ROA NOT REPORTED
     Route: 065
     Dates: start: 20221128
  5. VALACYCLOVIR HYDROCHLORIDE [Concomitant]
     Active Substance: VALACYCLOVIR HYDROCHLORIDE
     Indication: Product used for unknown indication
     Dosage: FREQUENCY, ROA NOT REPORTED
     Route: 065
     Dates: start: 20221128
  6. Tenefovir alafenamid [Concomitant]
     Indication: Product used for unknown indication
     Dosage: FREQUENCY, ROA NOT REPORTED
     Route: 065
     Dates: start: 20220914
  7. ALLOPURINOL [Concomitant]
     Active Substance: ALLOPURINOL
     Indication: Product used for unknown indication
     Dosage: FREQUENCY, ROA NOT REPORTED
     Route: 065
     Dates: start: 20220913
  8. CICLOPIROX [Concomitant]
     Active Substance: CICLOPIROX
     Indication: Product used for unknown indication
     Dosage: FREQUENCY, ROA NOT REPORTED
     Route: 065
     Dates: start: 20221213
  9. VENETOCLAX [Suspect]
     Active Substance: VENETOCLAX
     Indication: Chronic lymphocytic leukaemia
     Route: 048
     Dates: start: 20221207, end: 20230321
  10. ATORVASTATIN [Concomitant]
     Active Substance: ATORVASTATIN
     Indication: Product used for unknown indication
     Dosage: FREQUENCY, ROA NOT REPORTED
     Route: 065
     Dates: start: 20220622
  11. DUTASTERIDE\TAMSULOSIN [Concomitant]
     Active Substance: DUTASTERIDE\TAMSULOSIN
     Indication: Product used for unknown indication
  12. Weleda Amara-Tropfen [Concomitant]
     Indication: Product used for unknown indication
  13. Burgerstein Omega-3 EPA [Concomitant]
     Indication: Product used for unknown indication

REACTIONS (1)
  - Genitourinary tract infection [Not Recovered/Not Resolved]

NARRATIVE: CASE EVENT DATE: 20230321
